FAERS Safety Report 10025632 (Version 1)
Quarter: 2014Q1

REPORT INFORMATION
  Report Type: Spontaneous
  Country: US (occurrence: US)
  Receive Date: 20140320
  Receipt Date: 20140320
  Transmission Date: 20141002
  Serious: Yes (Hospitalization, Other)
  Sender: FDA-Public Use
  Company Number: US-ACTAVIS-2014-04987

PATIENT
  Sex: Female

DRUGS (2)
  1. TESTOSTERONE CYPIONATE (UNKNOWN) [Suspect]
     Indication: SEXUAL DYSFUNCTION
     Dosage: ONCE A MONTH
     Route: 065
     Dates: start: 2008, end: 2010
  2. ESTROGEN [Concomitant]
     Indication: PRODUCT USED FOR UNKNOWN INDICATION
     Dosage: UNK, UNKNOWN
     Route: 065

REACTIONS (1)
  - Myocardial infarction [Recovered/Resolved]
